FAERS Safety Report 24388499 (Version 1)
Quarter: 2024Q4

REPORT INFORMATION
  Report Type: Spontaneous
  Country: EG (occurrence: EG)
  Receive Date: 20241002
  Receipt Date: 20241002
  Transmission Date: 20250115
  Serious: Yes (Death)
  Sender: PFIZER
  Company Number: EG-PFIZER INC-PV202400128013

PATIENT
  Age: 8 Day
  Sex: Male
  Weight: 3.28 kg

DRUGS (4)
  1. MEROPENEM [Suspect]
     Active Substance: MEROPENEM
     Indication: Sepsis
     Dosage: 20 MG/KG, 3X/DAY
     Route: 042
     Dates: start: 20230403
  2. VANCOMYCIN [Suspect]
     Active Substance: VANCOMYCIN
     Indication: Sepsis
     Dosage: 10 MG/KG, 2X/DAY
     Route: 042
     Dates: start: 20230403
  3. AMIKACIN [Concomitant]
     Active Substance: AMIKACIN
     Dosage: 12 MG/KG, 1X/DAY
     Route: 042
  4. UNICTAM [AMPICILLIN SODIUM;SULBACTAM SODIUM] [Concomitant]
     Dosage: 50 MG/KG, 3X/DAY
     Route: 042
     Dates: start: 20240327

REACTIONS (2)
  - Pathogen resistance [Fatal]
  - Off label use [Unknown]

NARRATIVE: CASE EVENT DATE: 20230403
